FAERS Safety Report 11628914 (Version 1)
Quarter: 2015Q4

REPORT INFORMATION
  Report Type: Spontaneous
  Country: IT (occurrence: IT)
  Receive Date: 20151014
  Receipt Date: 20151014
  Transmission Date: 20160304
  Serious: Yes (Other)
  Sender: FDA-Public Use
  Company Number: IT-ELI_LILLY_AND_COMPANY-IT201510003196

PATIENT
  Age: 72 Year
  Sex: Female

DRUGS (1)
  1. FORSTEO [Suspect]
     Active Substance: TERIPARATIDE
     Indication: PRODUCT USED FOR UNKNOWN INDICATION
     Dosage: UNK, UNKNOWN
     Route: 065
     Dates: start: 20150916

REACTIONS (10)
  - Nausea [Unknown]
  - Fall [Unknown]
  - Hyperhidrosis [Unknown]
  - Influenza [Not Recovered/Not Resolved]
  - Abdominal pain upper [Unknown]
  - Loss of consciousness [Unknown]
  - Pain in extremity [Unknown]
  - Decreased appetite [Unknown]
  - Weight decreased [Unknown]
  - Fatigue [Unknown]

NARRATIVE: CASE EVENT DATE: 20150916
